FAERS Safety Report 9265255 (Version 1)
Quarter: 2013Q2

REPORT INFORMATION
  Report Type: Spontaneous
  Country: US (occurrence: US)
  Receive Date: 20130501
  Receipt Date: 20130501
  Transmission Date: 20140414
  Serious: No
  Sender: FDA-Public Use
  Company Number: US-ASTRAZENECA-2013SE25724

PATIENT
  Age: 70 Year
  Sex: Female
  Weight: 78.5 kg

DRUGS (5)
  1. PULMICORT FLEXHALER [Suspect]
     Indication: ASTHMA
     Route: 055
     Dates: start: 20130221
  2. PULMICORT FLEXHALER [Suspect]
     Indication: BRONCHITIS
     Route: 055
     Dates: start: 20130221
  3. INSULIN [Concomitant]
  4. MYCARDIS [Concomitant]
  5. SECTRAL [Concomitant]

REACTIONS (3)
  - Weight increased [Not Recovered/Not Resolved]
  - Food craving [Not Recovered/Not Resolved]
  - Fatigue [Not Recovered/Not Resolved]
